FAERS Safety Report 7589509-X (Version None)
Quarter: 2011Q3

REPORT INFORMATION
  Report Type: 
  Country: None (occurrence: None)
  Receive Date: 20110705
  Receipt Date: 20110622
  Transmission Date: 20111222
  Serious: Yes (Other)
  Sender: FDA-Public Use
  Company Number: CA-ROCHE-785399

PATIENT
  Sex: Female

DRUGS (10)
  1. PANTOPRAZOLE [Concomitant]
     Indication: UNEVALUABLE EVENT
  2. PREDNISONE [Concomitant]
  3. VITAMIN D [Concomitant]
  4. DOMPERIDONE [Concomitant]
     Indication: UNEVALUABLE EVENT
  5. TOCILIZUMAB [Suspect]
     Indication: RHEUMATOID ARTHRITIS
     Dosage: FORM: INFUSION
     Route: 042
     Dates: start: 20110224
  6. LIPITOR [Concomitant]
  7. ASPIRIN [Concomitant]
  8. METHOTREXATE [Concomitant]
  9. FOLIC ACID [Concomitant]
  10. OXYCONTIN [Concomitant]
     Indication: PAIN

REACTIONS (6)
  - OEDEMA PERIPHERAL [None]
  - ANAEMIA [None]
  - DEPRESSION [None]
  - FATIGUE [None]
  - HEADACHE [None]
  - DRY MOUTH [None]
